FAERS Safety Report 24995121 (Version 2)
Quarter: 2025Q2

REPORT INFORMATION
  Report Type: Report from Study
  Country: CO (occurrence: CO)
  Receive Date: 20250221
  Receipt Date: 20250402
  Transmission Date: 20250716
  Serious: No
  Sender: RECORDATI
  Company Number: CO-RECORDATI RARE DISEASES-2025001104

PATIENT
  Age: 39 Year
  Sex: Female
  Weight: 61 kg

DRUGS (2)
  1. PANHEMATIN [Suspect]
     Active Substance: HEMIN
     Indication: Porphyria acute
     Route: 042
     Dates: start: 20230922
  2. PANHEMATIN [Suspect]
     Active Substance: HEMIN
     Route: 042
     Dates: start: 20250212, end: 20250215

REACTIONS (6)
  - Vertigo [Recovered/Resolved]
  - Pain in extremity [Recovered/Resolved]
  - Decreased appetite [Recovered/Resolved]
  - Vertigo [Recovering/Resolving]
  - Pain in extremity [Recovering/Resolving]
  - Decreased appetite [Recovering/Resolving]

NARRATIVE: CASE EVENT DATE: 20230922
